FAERS Safety Report 8921751 (Version 1)
Quarter: 2012Q4

REPORT INFORMATION
  Report Type: 
  Country: CN (occurrence: CN)
  Receive Date: 20121121
  Receipt Date: 20121121
  Transmission Date: 20130627
  Serious: Yes (Other)
  Sender: FDA-Public Use
  Company Number: CN-ABBOTT-12P-035-1010126-00

PATIENT

DRUGS (1)
  1. CYCLOSPORINE [Suspect]
     Indication: NEPHROTIC SYNDROME
     Dosage: 3-5 mg/kg

REACTIONS (2)
  - Mesangioproliferative glomerulonephritis [Not Recovered/Not Resolved]
  - Nephropathy toxic [Not Recovered/Not Resolved]
